FAERS Safety Report 4990541-0 (Version None)
Quarter: 2006Q2

REPORT INFORMATION
  Report Type: 
  Country: None (occurrence: None)
  Receive Date: 20060502
  Receipt Date: 20060502
  Transmission Date: 20061013
  Serious: No
  Sender: FDA-Public Use
  Company Number: None

PATIENT
  Sex: Female
  Weight: 87.9978 kg

DRUGS (1)
  1. DURAGESIC-100 [Suspect]
     Indication: ISCHAEMIC NEUROPATHY
     Dosage: 100 MCG/HOUR

REACTIONS (1)
  - PHARMACEUTICAL PRODUCT COMPLAINT [None]
